FAERS Safety Report 9408299 (Version 2)
Quarter: 2013Q3

REPORT INFORMATION
  Report Type: Spontaneous
  Country: US (occurrence: US)
  Receive Date: 20130718
  Receipt Date: 20130727
  Transmission Date: 20140515
  Serious: Yes (Life-Threatening, Hospitalization)
  Sender: FDA-Public Use
  Company Number: PHHY2013US075350

PATIENT
  Age: 73 Year
  Sex: Female

DRUGS (4)
  1. IBUPROFEN [Suspect]
     Dosage: 2400 MG
  2. IBUPROFEN [Suspect]
     Dosage: 2000 MG
  3. LISINOPRIL [Suspect]
     Indication: DIABETES MELLITUS
  4. METFORMIN [Suspect]
     Indication: DIABETES MELLITUS

REACTIONS (5)
  - Renal failure acute [Recovered/Resolved]
  - Micturition disorder [Recovered/Resolved]
  - Electrocardiogram QRS complex prolonged [Recovered/Resolved]
  - Asthenia [Recovered/Resolved]
  - Nausea [Recovered/Resolved]
